FAERS Safety Report 6243186-9 (Version None)
Quarter: 2009Q2

REPORT INFORMATION
  Report Type: 
  Country: None (occurrence: None)
  Receive Date: 20090624
  Receipt Date: 20090424
  Transmission Date: 20091009
  Serious: Yes (Hospitalization)
  Sender: FDA-Public Use
  Company Number: TR-ELI_LILLY_AND_COMPANY-TR200906003334

PATIENT
  Sex: Male

DRUGS (5)
  1. HUMULIN R [Suspect]
     Indication: HYPERGLYCAEMIA
     Dosage: 5 IU, EACH MORNING
     Route: 058
     Dates: start: 20040424
  2. HUMULIN R [Suspect]
     Dosage: 5 IU, LUNCH
     Route: 058
     Dates: start: 20040424
  3. HUMULIN R [Suspect]
     Dosage: 5 IU, EACH EVENING
     Route: 058
     Dates: start: 20040424
  4. LANTUS [Concomitant]
     Indication: HYPERGLYCAEMIA
     Dosage: 30 IU, AT 8AM
     Route: 058
     Dates: start: 20040424
  5. LANTUS [Concomitant]
     Dosage: 30 IU, AT 23H30 PM
     Route: 058
     Dates: start: 20040424

REACTIONS (3)
  - BLOOD GLUCOSE FLUCTUATION [None]
  - PAIN IN EXTREMITY [None]
  - RENAL PAIN [None]
